FAERS Safety Report 5449722-4 (Version None)
Quarter: 2007Q3

REPORT INFORMATION
  Report Type: 
  Country: None (occurrence: None)
  Receive Date: 20070910
  Receipt Date: 20070828
  Transmission Date: 20080115
  Serious: Yes (Hospitalization)
  Sender: FDA-Public Use
  Company Number: 2006P1000302

PATIENT
  Age: 60 Year
  Sex: Female
  Weight: 76 kg

DRUGS (10)
  1. PLACEBO (PLACEBO) [Suspect]
     Indication: ACUTE MYOCARDIAL INFARCTION
     Dosage: 5 IU;BID;IV, 0.25 MG/KG;X1;IV
     Route: 042
     Dates: start: 20060213, end: 20060213
  2. PLACEBO (PLACEBO) [Suspect]
     Indication: ACUTE MYOCARDIAL INFARCTION
     Dosage: 5 IU;BID;IV, 0.25 MG/KG;X1;IV
     Route: 042
     Dates: start: 20060213, end: 20060213
  3. ABCIXIMAB (ABCIXIMAB) [Suspect]
     Indication: ACUTE MYOCARDIAL INFARCTION
     Dosage: 9.5 MG;X1; IV, 192 MG;X1;IV
     Route: 042
     Dates: start: 20060213, end: 20060213
  4. ASPIRIN [Concomitant]
  5. BETA BLOCKING AGENTS [Concomitant]
  6. ACE INHIBITOR NOS [Concomitant]
  7. CHOLESTEROL - AND TRIGLYCERIDE REDUCERS [Concomitant]
  8. METOPROLOL TARTRATE [Concomitant]
  9. ALL OTHER THERAPEUTIC PRODUCTS [Concomitant]
  10. ATORVASTATIN CALCIUM [Concomitant]

REACTIONS (3)
  - ATRIAL FIBRILLATION [None]
  - CORONARY ARTERY DISEASE [None]
  - CORONARY ARTERY STENOSIS [None]
